FAERS Safety Report 8623138-1 (Version None)
Quarter: 2012Q3

REPORT INFORMATION
  Report Type: 
  Country: None (occurrence: None)
  Receive Date: 20120827
  Receipt Date: 20120814
  Transmission Date: 20120928
  Serious: Yes (Death, Other)
  Sender: FDA-Public Use
  Company Number: FR-JNJFOC-20120807039

PATIENT
  Age: 52 Year

DRUGS (1)
  1. USTEKINUMAB [Suspect]
     Indication: ERYTHRODERMIC PSORIASIS
     Dosage: WEEK 0, WEEK 4 AND THEN EVERY 12 WEEKS
     Route: 058

REACTIONS (3)
  - SUDDEN DEATH [None]
  - OFF LABEL USE [None]
  - BACTERIAL DISEASE CARRIER [None]
